FAERS Safety Report 5884181-9 (Version None)
Quarter: 2008Q3

REPORT INFORMATION
  Report Type: 
  Country: None (occurrence: None)
  Receive Date: 20080915
  Receipt Date: 20080905
  Transmission Date: 20090109
  Serious: Yes (Other)
  Sender: FDA-Public Use
  Company Number: US-JNJCH-2008023113

PATIENT
  Age: 64 Year
  Sex: Female
  Weight: 90.7 kg

DRUGS (1)
  1. ADVANCED RELIEF VISINE [Suspect]
     Indication: DRY EYE
     Dosage: TEXT:^COUPLE^ ONCE
     Route: 047
     Dates: start: 20080904, end: 20080904

REACTIONS (1)
  - APPLICATION SITE BURN [None]
